FAERS Safety Report 7251180-4 (Version None)
Quarter: 2011Q1

REPORT INFORMATION
  Report Type: 
  Country: None (occurrence: None)
  Receive Date: 20110105
  Receipt Date: 20101222
  Transmission Date: 20110831
  Serious: Yes (Hospitalization, Other)
  Sender: FDA-Public Use
  Company Number: 2010PROUSA00115

PATIENT
  Age: 54 Year
  Sex: Male
  Weight: 79.8 kg

DRUGS (12)
  1. PROVENCE (SIPULEUCEL-T) SUSPENSION, 250ML [Suspect]
  2. SIMVASTATIN [Concomitant]
  3. PROCHLORPERAZINE MALEATE [Concomitant]
  4. MAALOX  /00082501/ (ALUMINIUM HYDROXIDE, MAGNESIUM HYDROXIDE) [Concomitant]
  5. CELEBREX [Concomitant]
  6. LIDOCAINE [Concomitant]
  7. PROVENGE (SIPULEUCEL-T) SUSPENSION, 250ML [Suspect]
     Indication: PROSTATE CANCER METASTATIC
     Dosage: 250 ML, SINGLE, INTRAVENOUS
     Route: 042
     Dates: start: 20100729, end: 20100729
  8. PROVENGE (SIPULEUCEL-T) SUSPENSION, 250ML [Suspect]
     Indication: PROSTATE CANCER METASTATIC
     Dosage: 250 ML, SINGLE, INTRAVENOUS
     Route: 042
     Dates: start: 20100827, end: 20100827
  9. LISINOPRIL [Concomitant]
  10. MIRALAX [Concomitant]
  11. CLONAZEPAM [Concomitant]
  12. DIPHENHYDRAMINE HCL [Concomitant]

REACTIONS (13)
  - ANAEMIA [None]
  - NEUTROPENIA [None]
  - HYPONATRAEMIA [None]
  - PAIN IN EXTREMITY [None]
  - MYALGIA [None]
  - CHEST PAIN [None]
  - ARTHRALGIA [None]
  - DYSPNOEA [None]
  - PAIN [None]
  - NEOPLASM MALIGNANT [None]
  - RENAL FAILURE ACUTE [None]
  - NIGHT SWEATS [None]
  - PROSTATE CANCER [None]
